FAERS Safety Report 4993074-0 (Version None)
Quarter: 2006Q1

REPORT INFORMATION
  Report Type: 
  Country: None (occurrence: None)
  Receive Date: 20060313
  Receipt Date: 20060113
  Transmission Date: 20060701
  Serious: No
  Sender: FDA-Public Use
  Company Number: 2006-BP-00625BP

PATIENT

DRUGS (2)
  1. SPIRIVA [Suspect]
     Dosage: (18 MCG),IH
  2. XOPENEX [Suspect]

REACTIONS (2)
  - ANGIONEUROTIC OEDEMA [None]
  - SWELLING FACE [None]
